FAERS Safety Report 4536205-9 (Version None)
Quarter: 2004Q4

REPORT INFORMATION
  Report Type: 
  Country: None (occurrence: None)
  Receive Date: 20041223
  Receipt Date: 20041203
  Transmission Date: 20050328
  Serious: Yes (Other)
  Sender: FDA-Public Use
  Company Number: 200404621

PATIENT
  Age: 79 Year
  Sex: Male

DRUGS (9)
  1. TAGAMET [Suspect]
     Dosage: 400MG PER DAY
     Route: 065
     Dates: start: 20040421
  2. HERBESSER [Concomitant]
     Route: 065
     Dates: start: 20011225
  3. INTRON A [Concomitant]
     Route: 065
     Dates: start: 20040625, end: 20040914
  4. RENIVACE [Concomitant]
     Route: 065
     Dates: start: 20011225
  5. ASPIRIN [Concomitant]
     Route: 065
     Dates: start: 20011225
  6. ZYLORIC [Concomitant]
     Route: 065
     Dates: start: 20011225
  7. ISOSORBIDE DINITRATE [Concomitant]
     Route: 065
     Dates: start: 20011225
  8. LASIX [Concomitant]
     Route: 065
     Dates: start: 20011225
  9. NORVASC [Concomitant]
     Route: 065
     Dates: start: 20040923, end: 20041026

REACTIONS (2)
  - ATRIOVENTRICULAR BLOCK [None]
  - VENTRICULAR EXTRASYSTOLES [None]
